FAERS Safety Report 11604871 (Version 2)
Quarter: 2017Q2

REPORT INFORMATION
  Report Type: Spontaneous
  Country: CH (occurrence: CH)
  Receive Date: 20151007
  Receipt Date: 20170609
  Transmission Date: 20170829
  Serious: Yes (Other)
  Sender: FDA-Public Use
  Company Number: CH-PFIZER INC-2015329997

PATIENT
  Age: 69 Year
  Sex: Male

DRUGS (11)
  1. IMBRUVICA [Interacting]
     Active Substance: IBRUTINIB
     Dosage: 2X 140 MG, 1X/DAY
     Route: 048
     Dates: start: 20150121, end: 20150723
  2. VFEND [Suspect]
     Active Substance: VORICONAZOLE
     Indication: ASPERGILLUS INFECTION
     Dosage: DOSE UNKNOWN
     Route: 048
     Dates: start: 20140923, end: 20140928
  3. IMBRUVICA [Interacting]
     Active Substance: IBRUTINIB
     Indication: CHRONIC LYMPHOCYTIC LEUKAEMIA
     Dosage: 140 MG, 1X/DAY
     Route: 048
     Dates: start: 201501, end: 20150121
  4. IMBRUVICA [Interacting]
     Active Substance: IBRUTINIB
     Dosage: 140 MG, 1X/DAY
     Route: 048
     Dates: start: 20150724
  5. NEXIUM [Concomitant]
     Active Substance: ESOMEPRAZOLE MAGNESIUM
     Dosage: 20 MG, 1X/DAY
     Route: 048
  6. VFEND [Interacting]
     Active Substance: VORICONAZOLE
     Dosage: 200 MG (1-0-1)
     Route: 048
     Dates: start: 20150325, end: 20150421
  7. VFEND [Interacting]
     Active Substance: VORICONAZOLE
     Dosage: 200 MG (1.5-0-1)
     Route: 048
     Dates: start: 20150421, end: 20150519
  8. DAFALGAN [Concomitant]
     Active Substance: ACETAMINOPHEN
     Dosage: UNK, AS NEEDED
     Route: 048
  9. BACTRIM [Concomitant]
     Active Substance: SULFAMETHOXAZOLE\TRIMETHOPRIM
     Dosage: 1 DF (160/800 MG), 3X/WEEK
     Route: 048
  10. VFEND [Interacting]
     Active Substance: VORICONAZOLE
     Dosage: 300 MG, 2X/DAY (1-0-1)
     Route: 048
     Dates: start: 20140929, end: 20150325
  11. VFEND [Interacting]
     Active Substance: VORICONAZOLE
     Dosage: 250 MG (1-0-1)
     Route: 048
     Dates: start: 20150519, end: 20150724

REACTIONS (7)
  - Face oedema [Recovering/Resolving]
  - Skin fissures [Recovering/Resolving]
  - Blister [Recovering/Resolving]
  - Oedema peripheral [Recovering/Resolving]
  - Photosensitivity reaction [Recovering/Resolving]
  - Erythema [Recovering/Resolving]
  - Drug interaction [Recovered/Resolved]

NARRATIVE: CASE EVENT DATE: 201501
